FAERS Safety Report 7623185-2 (Version None)
Quarter: 2011Q3

REPORT INFORMATION
  Report Type: 
  Country: None (occurrence: None)
  Receive Date: 20110720
  Receipt Date: 20110712
  Transmission Date: 20111222
  Serious: Yes (Hospitalization)
  Sender: FDA-Public Use
  Company Number: US-JNJFOC-20110613228

PATIENT
  Sex: Female
  Weight: 67.3 kg

DRUGS (19)
  1. CISAPRIDE [Suspect]
     Indication: IMPAIRED GASTRIC EMPTYING
     Route: 048
     Dates: start: 20010813
  2. CYCLOSPORINE [Concomitant]
     Route: 047
  3. LEVOTHYROXINE SODIUM [Concomitant]
     Indication: THYROID DISORDER
     Dosage: ALTERNATE WITH 0.088 MG
     Route: 048
  4. LATANOPROST [Concomitant]
     Dosage: AT BED TIME
     Route: 047
  5. LANSOPRAZOLE [Concomitant]
     Indication: ANTACID THERAPY
     Route: 048
  6. CISAPRIDE [Suspect]
     Indication: GASTROINTESTINAL MOTILITY DISORDER
     Route: 048
     Dates: start: 20010813
  7. CISAPRIDE [Suspect]
     Indication: GASTROOESOPHAGEAL REFLUX DISEASE
     Route: 048
     Dates: start: 20010813
  8. ASPIRIN [Concomitant]
     Route: 048
  9. CALCIUM AND VIT D [Concomitant]
     Indication: MEDICAL DIET
     Route: 048
  10. ACETAMINOPHEN [Concomitant]
     Route: 048
  11. GRANISETRON [Concomitant]
     Indication: NAUSEA
     Dosage: AS NEEDED
     Route: 048
  12. ALL OTHER THERAPEUTIC PRODUCT [Concomitant]
     Route: 061
  13. LIDOCAINE [Concomitant]
     Dosage: AS NEEDED
     Route: 061
  14. CARBOXYMETHYLCELLULOSE SODIUM [Concomitant]
     Indication: DRY EYE
     Route: 065
  15. CLONAZEPAM [Concomitant]
     Indication: DRUG THERAPY
     Dosage: 2 TAB AT BED TIME
     Route: 048
  16. NITROGLYCERIN [Concomitant]
     Route: 065
  17. TRIAMCINOLONE ACETONIDE [Concomitant]
     Indication: RASH PRURITIC
     Route: 061
  18. MULTI-VITAMINS [Concomitant]
     Indication: HYPOVITAMINOSIS
     Dosage: CAPSULE/ TABLET
     Route: 065
  19. AMMONIUM LACTATE [Concomitant]
     Indication: DRY SKIN
     Route: 065

REACTIONS (3)
  - CONFUSIONAL STATE [None]
  - ATRIAL FIBRILLATION [None]
  - BUNDLE BRANCH BLOCK RIGHT [None]
